FAERS Safety Report 21637741 (Version 1)
Quarter: 2022Q4

REPORT INFORMATION
  Report Type: Spontaneous
  Country: US (occurrence: US)
  Receive Date: 20221124
  Receipt Date: 20221124
  Transmission Date: 20230113
  Serious: Yes (Other)
  Sender: FDA-Public Use
  Company Number: US-SA-SAC20221122001339

PATIENT
  Sex: Female

DRUGS (20)
  1. DUPIXENT [Suspect]
     Active Substance: DUPILUMAB
     Indication: Dermatitis atopic
     Dosage: 300 MG, QOW
     Route: 058
  2. CODEINE SULFATE [Concomitant]
     Active Substance: CODEINE SULFATE
  3. TYLENOL [Concomitant]
     Active Substance: ACETAMINOPHEN
  4. HUMIRA [Concomitant]
     Active Substance: ADALIMUMAB
  5. SULFAMETHOXAZOLE [Concomitant]
     Active Substance: SULFAMETHOXAZOLE
  6. ALPRAZOLAM [Concomitant]
     Active Substance: ALPRAZOLAM
  7. LYRICA [Concomitant]
     Active Substance: PREGABALIN
  8. VITAMIN D3 [Concomitant]
     Active Substance: CHOLECALCIFEROL
  9. BIOTIN [Concomitant]
     Active Substance: BIOTIN
  10. VITAMINS NOS [Concomitant]
     Active Substance: VITAMINS
  11. PROAIR HFA [Concomitant]
     Active Substance: ALBUTEROL SULFATE
  12. VALACYCLOVIR [Concomitant]
     Active Substance: VALACYCLOVIR HYDROCHLORIDE
  13. PROGESTERONE [Concomitant]
     Active Substance: PROGESTERONE
  14. ASPIRIN [Concomitant]
     Active Substance: ASPIRIN
  15. CLOPIDOGREL [Concomitant]
     Active Substance: CLOPIDOGREL BISULFATE
  16. PANTOPRAZOLE SODIUM [Concomitant]
     Active Substance: PANTOPRAZOLE SODIUM
  17. ZYRTEC [Concomitant]
     Active Substance: CETIRIZINE HYDROCHLORIDE
  18. ESCITALOPRAM OXALATE [Concomitant]
     Active Substance: ESCITALOPRAM OXALATE
  19. OZEMPIC [Concomitant]
     Active Substance: SEMAGLUTIDE
  20. SYNJARDY [Concomitant]
     Active Substance: EMPAGLIFLOZIN\METFORMIN HYDROCHLORIDE

REACTIONS (1)
  - Rheumatoid arthritis [Unknown]
